FAERS Safety Report 8438436-4 (Version None)
Quarter: 2012Q2

REPORT INFORMATION
  Report Type: 
  Country: None (occurrence: None)
  Receive Date: 20120614
  Receipt Date: 20120607
  Transmission Date: 20120825
  Serious: No
  Sender: FDA-Public Use
  Company Number: US-UCBSA-058116

PATIENT
  Age: 28 Year
  Sex: Female

DRUGS (4)
  1. LEVETIRACETAM [Concomitant]
     Indication: EPILEPSY
  2. KEPPRA [Suspect]
     Indication: EPILEPSY
     Dates: start: 20120315
  3. MULTI-VITAMINS [Concomitant]
     Indication: PREGNANCY
     Dosage: 1 TABLET DAILY
     Route: 048
     Dates: start: 20110901
  4. LEUCOVORIN CALCIUM [Concomitant]
     Route: 048
     Dates: start: 20110901

REACTIONS (4)
  - MATERNAL EXPOSURE DURING PREGNANCY [None]
  - PREGNANCY [None]
  - ANAEMIA OF PREGNANCY [None]
  - ANAEMIA [None]
